FAERS Safety Report 24579897 (Version 1)
Quarter: 2024Q4

REPORT INFORMATION
  Report Type: Spontaneous
  Country: GB (occurrence: GB)
  Receive Date: 20241105
  Receipt Date: 20241105
  Transmission Date: 20250114
  Serious: Yes (Life-Threatening, Other)
  Sender: TEVA
  Company Number: GB-MHRA-EMIS-2232-dfbd12dc-9e96-4456-b566-43963d4b0bea

PATIENT
  Age: 66 Year
  Sex: Female
  Weight: 58 kg

DRUGS (6)
  1. RAMIPRIL [Suspect]
     Active Substance: RAMIPRIL
     Dosage: DAILY DOSE: 1 DOSAGE FORM
     Route: 065
     Dates: start: 20241007
  2. CLOTRIMAZOLE [Concomitant]
     Active Substance: CLOTRIMAZOLE
     Dosage: TO BE USED AS DIRECTED
     Route: 067
     Dates: start: 20240911
  3. CLOTRIMAZOLE [Concomitant]
     Active Substance: CLOTRIMAZOLE
     Dosage: TO BE USED AS DIRECTED
     Dates: start: 20240911
  4. AUDAVATE [Concomitant]
     Dosage: APPLY THINLY TWICE A DAY FOR 3 WEEKS, THEN BOOK ANOTHER APPOINTMENT TO REVIEW THE SKIN LESION 100...
     Dates: start: 20240729, end: 20240910
  5. ESCITALOPRAM [Concomitant]
     Active Substance: ESCITALOPRAM OXALATE
     Dosage: DAILY DOSE: 1 DOSAGE FORM
     Dates: start: 20240911
  6. CITALOPRAM [Concomitant]
     Active Substance: CITALOPRAM
     Dosage: DURATION: 44 DAYS ; DAILY DOSE: 1 DOSAGE FORM
     Dates: start: 20240729, end: 20240911

REACTIONS (3)
  - Lip swelling [Unknown]
  - Swelling face [Unknown]
  - Angioedema [Unknown]
